FAERS Safety Report 15578478 (Version 1)
Quarter: 2018Q4

REPORT INFORMATION
  Report Type: Spontaneous
  Country: IN (occurrence: IN)
  Receive Date: 20181102
  Receipt Date: 20181102
  Transmission Date: 20190205
  Serious: Yes (Other)
  Sender: FDA-Public Use
  Company Number: IN-LUPIN LTD-2016-05604

PATIENT
  Age: 25 Year
  Sex: Male

DRUGS (12)
  1. LEVOFLOXACIN. [Concomitant]
     Active Substance: LEVOFLOXACIN
     Indication: PULMONARY TUBERCULOSIS
  2. AMOXICILLINE-CLAVULANATE [Concomitant]
     Indication: PULMONARY TUBERCULOSIS
  3. CLOFAZIMINE [Concomitant]
     Active Substance: CLOFAZIMINE
     Indication: TUBERCULOSIS
     Dosage: 100 MG,QD,
     Route: 065
  4. LEVOFLOXACIN. [Concomitant]
     Active Substance: LEVOFLOXACIN
     Indication: TUBERCULOSIS
     Dosage: 1000 MG,QD,
     Route: 065
  5. CYCLOSERINE. [Concomitant]
     Active Substance: CYCLOSERINE
     Indication: TUBERCULOSIS
     Dosage: 500 MG,QD,
     Route: 065
  6. PARA-AMINOSALICYLATE [Concomitant]
     Indication: PULMONARY TUBERCULOSIS
  7. LINEZOLID. [Suspect]
     Active Substance: LINEZOLID
     Indication: PULMONARY TUBERCULOSIS
  8. CYCLOSERINE. [Concomitant]
     Active Substance: CYCLOSERINE
     Indication: PULMONARY TUBERCULOSIS
  9. LINEZOLID. [Suspect]
     Active Substance: LINEZOLID
     Indication: TUBERCULOSIS
     Dosage: 600 MG,QD,
     Route: 065
  10. CLOFAZIMINE [Concomitant]
     Active Substance: CLOFAZIMINE
     Indication: PULMONARY TUBERCULOSIS
  11. PARA-AMINOSALICYLATE [Concomitant]
     Indication: TUBERCULOSIS
     Dosage: UNK UNK,UNK,
     Route: 065
  12. AMOXICILLINE-CLAVULANATE [Concomitant]
     Indication: TUBERCULOSIS
     Dosage: 1000 MG/250 MG/DAY
     Route: 065

REACTIONS (1)
  - Optic neuropathy [Unknown]
